FAERS Safety Report 5334146-0 (Version None)
Quarter: 2007Q2

REPORT INFORMATION
  Report Type: 
  Country: None (occurrence: None)
  Receive Date: 20070522
  Receipt Date: 20070508
  Transmission Date: 20071010
  Serious: Yes (Other)
  Sender: FDA-Public Use
  Company Number: 230022M07GBR

PATIENT
  Age: 46 Year
  Sex: Female

DRUGS (1)
  1. REBIF [Suspect]
     Dosage: 44, 3 IN 1 WEEKS, SUBCUTANEOUS
     Route: 058
     Dates: start: 20010301

REACTIONS (8)
  - CONDITION AGGRAVATED [None]
  - CONVULSION [None]
  - FATIGUE [None]
  - HEADACHE [None]
  - MOBILITY DECREASED [None]
  - MUSCULAR WEAKNESS [None]
  - PYREXIA [None]
  - TREMOR [None]
